FAERS Safety Report 4803417-6 (Version None)
Quarter: 2005Q4

REPORT INFORMATION
  Report Type: 
  Country: None (occurrence: None)
  Receive Date: 20051013
  Receipt Date: 20050926
  Transmission Date: 20060501
  Serious: Yes (Other)
  Sender: FDA-Public Use
  Company Number: TRP_0493_2005

PATIENT
  Age: 50 Year
  Sex: Male
  Weight: 115.6672 kg

DRUGS (7)
  1. RIBASPHERE [Suspect]
     Indication: HEPATITIS C
     Dosage: 1400 MG PO
     Route: 048
     Dates: start: 20050211
  2. PEG-INTRON [Suspect]
     Indication: HEPATITIS C
     Dosage: DF SC
     Route: 058
     Dates: start: 20050211
  3. GLUCOTROL [Concomitant]
  4. MOTRIN [Concomitant]
  5. PERCOCET [Concomitant]
  6. PROTONIX [Concomitant]
  7. VALIUM [Concomitant]

REACTIONS (6)
  - ARTHRALGIA [None]
  - FALL [None]
  - LOSS OF CONSCIOUSNESS [None]
  - PLATELET COUNT DECREASED [None]
  - RIB FRACTURE [None]
  - WEIGHT DECREASED [None]
